FAERS Safety Report 20454510 (Version 2)
Quarter: 2025Q3

REPORT INFORMATION
  Report Type: Spontaneous
  Country: EU (occurrence: EU)
  Receive Date: 20220210
  Receipt Date: 20250723
  Transmission Date: 20251021
  Serious: Yes (Hospitalization, Other)
  Sender: NOVARTIS
  Company Number: EU-NOVARTISPH-NVSC2021DE223392

PATIENT
  Age: 70 Year
  Sex: Male
  Weight: 178 kg

DRUGS (6)
  1. GLIVEC [Suspect]
     Active Substance: IMATINIB MESYLATE
     Indication: Gastrointestinal stromal tumour
     Dosage: 400 MG, QD
     Route: 065
     Dates: start: 201709, end: 2020
  2. GLIVEC [Suspect]
     Active Substance: IMATINIB MESYLATE
     Dosage: 400 MG, QD
     Route: 065
     Dates: start: 201709, end: 20200317
  3. GLIVEC [Suspect]
     Active Substance: IMATINIB MESYLATE
     Dosage: 400 MG, QD
     Route: 065
     Dates: start: 202107
  4. GLIVEC [Suspect]
     Active Substance: IMATINIB MESYLATE
     Dosage: 400 MG, QD
     Route: 065
     Dates: start: 202109
  5. BISOPROLOL FUMARATE [Concomitant]
     Active Substance: BISOPROLOL FUMARATE
     Indication: Product used for unknown indication
     Dosage: UNK UNK, QD, (2.5)
     Route: 065
     Dates: start: 202003
  6. ATORVASTATIN [Concomitant]
     Active Substance: ATORVASTATIN
     Indication: Product used for unknown indication
     Dosage: UNK UNK, QD (40)
     Route: 065
     Dates: start: 202003

REACTIONS (7)
  - Coronary artery disease [Recovered/Resolved]
  - Gastrointestinal stromal tumour [Recovering/Resolving]
  - Recurrent cancer [Recovering/Resolving]
  - Cubital tunnel syndrome [Recovering/Resolving]
  - Pain [Not Recovered/Not Resolved]
  - Headache [Recovered/Resolved]
  - Hypoaesthesia [Not Recovered/Not Resolved]

NARRATIVE: CASE EVENT DATE: 20171001
